FAERS Safety Report 22181472 (Version 3)
Quarter: 2023Q2

REPORT INFORMATION
  Report Type: Spontaneous
  Country: US (occurrence: US)
  Receive Date: 20230406
  Receipt Date: 20230620
  Transmission Date: 20230721
  Serious: No
  Sender: FDA-Public Use
  Company Number: US-PFIZER INC-202300140951

PATIENT
  Age: 78 Year
  Sex: Female
  Weight: 68.04 kg

DRUGS (3)
  1. SOMATROPIN [Suspect]
     Active Substance: SOMATROPIN
     Indication: Pituitary tumour
     Dosage: UNK
  2. SOMATROPIN [Suspect]
     Active Substance: SOMATROPIN
     Dosage: 0.2 MG
  3. SOMATROPIN [Suspect]
     Active Substance: SOMATROPIN
     Dosage: 0.4 MG

REACTIONS (3)
  - Drug dose omission by device [Unknown]
  - Off label use [Unknown]
  - Contraindicated product administered [Unknown]
